FAERS Safety Report 7777232-8 (Version None)
Quarter: 2011Q3

REPORT INFORMATION
  Report Type: 
  Country: None (occurrence: None)
  Receive Date: 20110926
  Receipt Date: 20110912
  Transmission Date: 20111222
  Serious: Yes (Disabling, Other)
  Sender: FDA-Public Use
  Company Number: PHHY2011JP52333

PATIENT
  Sex: Male

DRUGS (34)
  1. CLOZARIL [Suspect]
     Dosage: 100 MG,
     Route: 048
     Dates: start: 20110524, end: 20110525
  2. ZYPREXA [Concomitant]
     Dosage: 20 MG, UNK
     Dates: end: 20110619
  3. RISPERDAL [Concomitant]
     Dosage: 12 MG, UNK
     Route: 048
     Dates: start: 20110616
  4. AKINETON [Concomitant]
     Dosage: 6 MG, UNK
  5. MUCOSOLVAN [Concomitant]
     Dosage: 45 MG, UNK
     Dates: start: 20110604, end: 20110607
  6. CLOZARIL [Suspect]
     Dosage: 200 MG,
     Route: 048
     Dates: start: 20110611, end: 20110615
  7. BLONANSERIN [Concomitant]
     Dosage: 8 MG, UNK
     Route: 048
     Dates: start: 20110517
  8. SEROQUEL [Concomitant]
     Dosage: 750 MG, UNK
     Route: 048
  9. CLOZARIL [Suspect]
     Dosage: 50 MG,
     Route: 048
     Dates: start: 20110519, end: 20110523
  10. RISPERIDONE [Concomitant]
     Dosage: 12 MG, UNK
     Dates: start: 20110517
  11. CLOZARIL [Suspect]
     Indication: SCHIZOPHRENIA
     Dosage: 125 MG,
     Route: 048
     Dates: start: 20110517, end: 20110517
  12. RISPERIDONE [Concomitant]
     Dosage: 6 MG, UNK
  13. LULLAN [Concomitant]
     Dosage: 48 MG, UNK
     Dates: start: 20110726
  14. AKINETON [Concomitant]
     Dosage: 3 MG, UNK
  15. URSO 250 [Concomitant]
  16. CLOZARIL [Suspect]
     Dosage: 125 MG,
     Route: 048
     Dates: start: 20110526, end: 20110608
  17. CLOZARIL [Suspect]
     Dosage: 150 MG,
     Route: 048
     Dates: start: 20110609, end: 20110609
  18. ZYPREXA [Concomitant]
     Dosage: 20 MG, UNK
     Dates: start: 20110517
  19. SEROQUEL [Concomitant]
     Dosage: 600 MG, UNK
     Route: 048
  20. BARNETIL [Concomitant]
     Dosage: 900 MG, UNK
     Dates: start: 20110815
  21. AKINETON [Concomitant]
     Dosage: 4 MG, UNK
  22. MAGNESIUM SULFATE [Concomitant]
     Dosage: 1 G, UNK
     Dates: start: 20110731
  23. CLOZARIL [Suspect]
     Dosage: 175 MG,
     Route: 048
     Dates: start: 20110610, end: 20110610
  24. CLOZARIL [Suspect]
     Dosage: 100 MG,
     Route: 048
     Dates: start: 20110616, end: 20110616
  25. ZYPREXA [Concomitant]
     Dosage: 10 MG, UNK
  26. BLONANSERIN [Concomitant]
     Dosage: 4 MG, UNK
     Dates: end: 20110525
  27. AKINETON [Concomitant]
     Dosage: 3 MG, UNK
  28. PURSENNID [Concomitant]
     Dosage: 12 MG, UNK
     Route: 048
     Dates: start: 20110802
  29. SEROQUEL [Concomitant]
     Dosage: 400 MG, UNK
     Route: 048
     Dates: start: 20110712
  30. CLOZARIL [Suspect]
     Dosage: 25 MG,
     Route: 048
     Dates: start: 20110518, end: 20110518
  31. RISPERIDONE [Concomitant]
     Dosage: UNK
     Dates: end: 20110607
  32. AKINETON [Concomitant]
     Dosage: 2 MG, UNK
     Dates: start: 20110517
  33. FLOMOX [Concomitant]
     Dosage: 300 MG, UNK
     Dates: start: 20110604, end: 20110613
  34. MAGNESIUM SULFATE [Concomitant]
     Dosage: 2 G, UNK

REACTIONS (8)
  - BLOOD LACTATE DEHYDROGENASE INCREASED [None]
  - ALANINE AMINOTRANSFERASE INCREASED [None]
  - GAMMA-GLUTAMYLTRANSFERASE INCREASED [None]
  - HEPATIC FUNCTION ABNORMAL [None]
  - LYMPHOCYTE COUNT DECREASED [None]
  - EOSINOPHIL COUNT INCREASED [None]
  - ASPARTATE AMINOTRANSFERASE INCREASED [None]
  - HAEMOGLOBIN INCREASED [None]
